FAERS Safety Report 8390102-X (Version None)
Quarter: 2012Q2

REPORT INFORMATION
  Report Type: 
  Country: None (occurrence: None)
  Receive Date: 20120529
  Receipt Date: 20120524
  Transmission Date: 20120825
  Serious: Yes (Other)
  Sender: FDA-Public Use
  Company Number: PHFR2012GB003172

PATIENT
  Age: 15 Year

DRUGS (1)
  1. EXJADE [Suspect]
     Indication: THALASSAEMIA
     Dosage: 20 MG/KG, (TOTAL DOSE: 1000 MG)
     Route: 048

REACTIONS (2)
  - HEPATITIS C VIRUS TEST POSITIVE [None]
  - NEUTROPHIL COUNT DECREASED [None]
